FAERS Safety Report 4933658-9 (Version None)
Quarter: 2006Q1

REPORT INFORMATION
  Report Type: 
  Country: None (occurrence: None)
  Receive Date: 20060306
  Receipt Date: 20060227
  Transmission Date: 20060701
  Serious: Yes (Hospitalization)
  Sender: FDA-Public Use
  Company Number: US-BRISTOL-MYERS SQUIBB COMPANY-13297007

PATIENT
  Age: 68 Year
  Sex: Male
  Weight: 57 kg

DRUGS (1)
  1. SINEMET [Suspect]
     Dates: start: 20030101

REACTIONS (5)
  - ABASIA [None]
  - DISORIENTATION [None]
  - LETHARGY [None]
  - PSYCHOTIC DISORDER [None]
  - URINARY INCONTINENCE [None]
